FAERS Safety Report 8024404-3 (Version None)
Quarter: 2012Q1

REPORT INFORMATION
  Report Type: 
  Country: None (occurrence: None)
  Receive Date: 20120105
  Receipt Date: 20120105
  Transmission Date: 20120608
  Serious: Yes (Other)
  Sender: FDA-Public Use
  Company Number: None

PATIENT
  Age: 49 Year
  Sex: Female
  Weight: 106.59 kg

DRUGS (1)
  1. DULERA ORAL INHALATION [Suspect]
     Indication: ASTHMA
     Dosage: 2 INHALATIONS
     Route: 048
     Dates: start: 20111212, end: 20111212

REACTIONS (1)
  - VENTRICULAR EXTRASYSTOLES [None]
